FAERS Safety Report 11499912 (Version 1)
Quarter: 2015Q3

REPORT INFORMATION
  Report Type: Spontaneous
  Country: NL (occurrence: NL)
  Receive Date: 20150914
  Receipt Date: 20150914
  Transmission Date: 20151125
  Serious: Yes (Life-Threatening)
  Sender: FDA-Public Use
  Company Number: NL-ROCHE-1633037

PATIENT
  Age: 60 Year
  Sex: Female
  Weight: 52 kg

DRUGS (2)
  1. THYRAX DUOTAB [Concomitant]
     Active Substance: LEVOTHYROXINE
     Route: 048
     Dates: start: 19900101
  2. ROACTEMRA [Suspect]
     Active Substance: TOCILIZUMAB
     Indication: RHEUMATOID ARTHRITIS
     Dosage: INFVLST CONC 20 MG/ML FLACON 10 ML
     Route: 058
     Dates: start: 20150712, end: 20150719

REACTIONS (4)
  - Haematoma [Recovering/Resolving]
  - Breast disorder [Recovering/Resolving]
  - Cystitis [Recovering/Resolving]
  - Large intestine perforation [Recovering/Resolving]

NARRATIVE: CASE EVENT DATE: 20150716
